FAERS Safety Report 6774722-1 (Version None)
Quarter: 2010Q2

REPORT INFORMATION
  Report Type: 
  Country: None (occurrence: None)
  Receive Date: 20100617
  Receipt Date: 20100614
  Transmission Date: 20101027
  Serious: Yes (Hospitalization)
  Sender: FDA-Public Use
  Company Number: US-BRISTOL-MYERS SQUIBB COMPANY-15147853

PATIENT
  Age: 45 Year
  Sex: Female

DRUGS (2)
  1. CARBOPLATIN [Suspect]
     Indication: BREAST CANCER
     Dosage: STARTED WITH 918 MG LAST DOSE PRIOR TO EVENT:5MAR10
     Route: 042
     Dates: start: 20091221
  2. ABRAXANE [Suspect]
     Indication: BREAST CANCER
     Dosage: LAST DOSE PRIOR TO EVENT:5MAR10
     Route: 042
     Dates: start: 20091207

REACTIONS (1)
  - RENAL FAILURE ACUTE [None]
